FAERS Safety Report 17573348 (Version 2)
Quarter: 2020Q1

REPORT INFORMATION
  Report Type: Spontaneous
  Country: SE (occurrence: SE)
  Receive Date: 20200323
  Receipt Date: 20200331
  Transmission Date: 20200409
  Serious: Yes (Other)
  Sender: FDA-Public Use
  Company Number: SE-MYLANLABS-2020M1030114

PATIENT
  Age: 51 Year
  Sex: Female

DRUGS (2)
  1. NOVOFEM [Suspect]
     Active Substance: ESTRADIOL HEMIHYDRATE\NORETHINDRONE ACETATE
     Indication: AMENORRHOEA
     Dosage: UNK (DAILY) (1-16 TAKE A EVERY DAY FOR 16 DAYS), 17-28 TAKE A TABLET EVERY DAY FOR 12 DAYS
     Dates: start: 20190717, end: 201909
  2. FEMASEKVENS TABLETTER [Suspect]
     Active Substance: ESTRADIOL\NORETHINDRONE ACETATE
     Indication: AMENORRHOEA
     Dosage: UNK (DAILY) (1-16 TAKE AN ORANGE TABLET EVERY DAY FOR 16 DAYS, 17-28 TAKE A EVERY DAY FOR 12 DAYS)
     Dates: start: 20190517, end: 20190717

REACTIONS (3)
  - Hypoaesthesia [Unknown]
  - Breast cancer [Unknown]
  - Therapy non-responder [Unknown]

NARRATIVE: CASE EVENT DATE: 20191015
